FAERS Safety Report 9454314 (Version 6)
Quarter: 2014Q1

REPORT INFORMATION
  Report Type: Report from Study
  Country: US (occurrence: US)
  Receive Date: 20130812
  Receipt Date: 20140109
  Transmission Date: 20141002
  Serious: No
  Sender: FDA-Public Use
  Company Number: US-VERTEX PHARMACEUTICALS INC-2013-008692

PATIENT
  Age: 47 Year
  Sex: Female
  Weight: 80.27 kg

DRUGS (6)
  1. VX-950 (TELAPREVIR) [Suspect]
     Indication: HEPATITIS C
     Dosage: 750 MG, TID
     Route: 048
     Dates: start: 20130725, end: 20131016
  2. PEGASYS [Suspect]
     Indication: HEPATITIS C
     Dosage: 180 ?G, QW
     Route: 058
     Dates: start: 20130725, end: 20140102
  3. COPEGUS [Suspect]
     Indication: HEPATITIS C
     Dosage: 3 DF, BID
     Dates: start: 20130725, end: 20130828
  4. COPEGUS [Suspect]
     Dosage: 3 TABS QAM, 2 TABS QPM
     Dates: start: 20130829
  5. COPEGUS [Suspect]
     Dosage: 2 DF, BID
  6. HYDROXIZINE [Concomitant]
     Indication: PRURITUS
     Dosage: 50 MG, TID
     Dates: start: 20131016

REACTIONS (14)
  - Dizziness [Recovered/Resolved]
  - Fall [Recovered/Resolved]
  - Viral infection [Recovered/Resolved]
  - Abdominal pain upper [Recovered/Resolved]
  - Cough [Recovered/Resolved]
  - Fatigue [Not Recovered/Not Resolved]
  - Diarrhoea [Not Recovered/Not Resolved]
  - Anal pruritus [Recovered/Resolved]
  - Anorectal discomfort [Recovered/Resolved]
  - Rash [Not Recovered/Not Resolved]
  - Anaemia [Not Recovered/Not Resolved]
  - Pruritus [Not Recovered/Not Resolved]
  - Vomiting [Recovered/Resolved]
  - Nausea [Recovered/Resolved]
